FAERS Safety Report 6636152-2 (Version None)
Quarter: 2010Q1

REPORT INFORMATION
  Report Type: 
  Country: None (occurrence: None)
  Receive Date: 20100316
  Receipt Date: 20100312
  Transmission Date: 20100710
  Serious: Yes (Hospitalization, Other)
  Sender: FDA-Public Use
  Company Number: US-ROXANE LABORATORIES, INC.-2010-RO-00263RO

PATIENT
  Age: 9 Year
  Sex: Male

DRUGS (6)
  1. MYCOPHENOLATE MOFETIL [Suspect]
     Indication: IMMUNOSUPPRESSION
  2. MYCOPHENOLATE MOFETIL [Suspect]
     Indication: RENAL TRANSPLANT
  3. PREDNISONE [Suspect]
     Dosage: 15 MG
  4. TACROLIMUS [Suspect]
     Dosage: 4 MG
  5. RANITIDINE [Suspect]
  6. AZATHIOPRINE [Concomitant]
     Indication: IMMUNOSUPPRESSION

REACTIONS (5)
  - COLITIS [None]
  - DRUG TOXICITY [None]
  - OESOPHAGITIS [None]
  - TACHYCARDIA [None]
  - TRANSPLANT REJECTION [None]
